FAERS Safety Report 8574873-5 (Version None)
Quarter: 2012Q3

REPORT INFORMATION
  Report Type: 
  Country: None (occurrence: None)
  Receive Date: 20120807
  Receipt Date: 20120725
  Transmission Date: 20120928
  Serious: Yes (Hospitalization, Congenital Anomaly, Other)
  Sender: FDA-Public Use
  Company Number: IN-ELI_LILLY_AND_COMPANY-IN201207008500

PATIENT

DRUGS (1)
  1. HUMALOG MIX 50/50 [Suspect]
     Route: 064

REACTIONS (5)
  - FOETAL EXPOSURE DURING PREGNANCY [None]
  - AMNIOTIC FLUID VOLUME DECREASED [None]
  - PREMATURE BABY [None]
  - CONGENITAL ANOMALY [None]
  - RESPIRATORY DISORDER NEONATAL [None]
